FAERS Safety Report 18495296 (Version 1)
Quarter: 2020Q4

REPORT INFORMATION
  Report Type: Spontaneous
  Country: US (occurrence: US)
  Receive Date: 20201112
  Receipt Date: 20201112
  Transmission Date: 20210114
  Serious: No
  Sender: FDA-Public Use
  Company Number: US-MYLANLABS-2020M1092522

PATIENT
  Sex: Female

DRUGS (1)
  1. ESTRADIOL TRANSDERMAL SYSTEM [Suspect]
     Active Substance: ESTRADIOL
     Indication: PRODUCT USED FOR UNKNOWN INDICATION
     Dosage: 0.05 MILLIGRAM, QD
     Route: 062

REACTIONS (6)
  - Vaginal haemorrhage [Recovered/Resolved]
  - Product substitution issue [Recovered/Resolved]
  - Urinary incontinence [Recovered/Resolved]
  - Breast tenderness [Recovered/Resolved]
  - Drug ineffective [Recovered/Resolved]
  - Mood swings [Recovered/Resolved]
